FAERS Safety Report 25139453 (Version 1)
Quarter: 2025Q1

REPORT INFORMATION
  Report Type: Spontaneous
  Country: JP (occurrence: JP)
  Receive Date: 20250331
  Receipt Date: 20250331
  Transmission Date: 20250409
  Serious: Yes (Death, Other)
  Sender: AUROBINDO
  Company Number: JP-EMA-DD-20171229-sameerhpdd-115407

PATIENT
  Age: 68 Year
  Sex: Male

DRUGS (13)
  1. ZEVALIN [Suspect]
     Active Substance: IBRITUMOMAB TIUXETAN
     Indication: Follicular lymphoma
     Route: 042
     Dates: start: 201502
  2. ZEVALIN [Suspect]
     Active Substance: IBRITUMOMAB TIUXETAN
     Route: 042
     Dates: start: 201502
  3. AZACITIDINE [Suspect]
     Active Substance: AZACITIDINE
     Indication: Follicular lymphoma
     Route: 065
  4. CYCLOPHOSPHAMIDE [Suspect]
     Active Substance: CYCLOPHOSPHAMIDE
     Indication: Follicular lymphoma
     Route: 042
     Dates: start: 2015
  5. CYCLOPHOSPHAMIDE [Suspect]
     Active Substance: CYCLOPHOSPHAMIDE
     Route: 042
     Dates: start: 2015
  6. CYTARABINE [Suspect]
     Active Substance: CYTARABINE
     Indication: Follicular lymphoma
     Route: 065
     Dates: start: 2015
  7. DEXAMETHASONE [Suspect]
     Active Substance: DEXAMETHASONE
     Indication: Follicular lymphoma
     Route: 065
     Dates: start: 2015
  8. DOXORUBICIN [Suspect]
     Active Substance: DOXORUBICIN
     Indication: Follicular lymphoma
     Route: 042
     Dates: start: 2015
  9. ETOPOSIDE [Suspect]
     Active Substance: ETOPOSIDE
     Indication: Follicular lymphoma
     Route: 065
     Dates: start: 2015
  10. PREDNISOLONE [Suspect]
     Active Substance: PREDNISOLONE
     Indication: Follicular lymphoma
     Route: 048
     Dates: start: 2015
  11. RITUXIMAB [Suspect]
     Active Substance: RITUXIMAB
     Indication: Follicular lymphoma
     Route: 042
     Dates: start: 2015
  12. RITUXIMAB [Suspect]
     Active Substance: RITUXIMAB
     Route: 042
     Dates: start: 2015
  13. VINCRISTINE [Suspect]
     Active Substance: VINCRISTINE
     Indication: Follicular lymphoma
     Route: 042
     Dates: start: 2015

REACTIONS (5)
  - Sepsis [Fatal]
  - Acute myeloid leukaemia [Fatal]
  - Anaemia [Fatal]
  - Thrombocytopenia [Fatal]
  - Acute myeloid leukaemia recurrent [Fatal]

NARRATIVE: CASE EVENT DATE: 20160301
